FAERS Safety Report 8781406 (Version 1)
Quarter: 2012Q4

REPORT INFORMATION
  Report Type: 
  Country: US (occurrence: US)
  Receive Date: 20120913
  Receipt Date: 20120913
  Transmission Date: 20130627
  Serious: Yes (Other)
  Sender: FDA-Public Use
  Company Number: PHEH2012US017382

PATIENT
  Sex: Female

DRUGS (10)
  1. DIOVAN HCT [Suspect]
     Dosage: UNK UKN, UNK
  2. ALPRAZOLAM [Concomitant]
     Dosage: Dose: 0.5 mg, frequency: 2 per day
  3. ALBUTEROL SULFATE [Concomitant]
     Dosage: 0.083%-.2.5 mg
  4. VITAMIN C [Concomitant]
     Dosage: 1000 mg, UNK
  5. POTASSIUM GLUCONATE [Concomitant]
     Dosage: UNK UKN, UNK
  6. CALTRATE [Concomitant]
     Dosage: UNK UKN, UNK
  7. CALCIUM [Concomitant]
     Dosage: Calcium Vitamin 600 D Plus
  8. LUMIGAN [Concomitant]
     Dosage: Lumigan Opth Soln: 0.01-2.5 ml
  9. DORZOLAMIDE [Concomitant]
     Dosage: Dorzolamide Ophth Soln: 10 ml
  10. VITAMIN D [Concomitant]
     Dosage: Calcium Vitamin 600 D Plus

REACTIONS (3)
  - Chronic obstructive pulmonary disease [Unknown]
  - Glaucoma [Unknown]
  - Astigmatism [None]
